FAERS Safety Report 8422258-4 (Version None)
Quarter: 2012Q2

REPORT INFORMATION
  Report Type: 
  Country: None (occurrence: None)
  Receive Date: 20120608
  Receipt Date: 20120604
  Transmission Date: 20120825
  Serious: Yes (Other)
  Sender: FDA-Public Use
  Company Number: US-BAYER-2011-075078

PATIENT
  Age: 32 Year
  Sex: Female
  Weight: 136.5 kg

DRUGS (5)
  1. IBUPROFEN (ADVIL) [Concomitant]
  2. ACETAMINOPHEN [Concomitant]
  3. YASMIN [Suspect]
     Indication: PREMENSTRUAL SYNDROME
     Dosage: UNK
     Dates: start: 20090701, end: 20100101
  4. YASMIN [Suspect]
     Indication: ACNE
  5. YASMIN [Suspect]

REACTIONS (3)
  - CHOLECYSTITIS CHRONIC [None]
  - INJURY [None]
  - GALLBLADDER INJURY [None]
